FAERS Safety Report 4432875-4 (Version None)
Quarter: 2004Q3

REPORT INFORMATION
  Report Type: 
  Country: None (occurrence: None)
  Receive Date: 20040823
  Receipt Date: 20040810
  Transmission Date: 20050211
  Serious: Yes (Hospitalization)
  Sender: FDA-Public Use
  Company Number: CIP04001765

PATIENT
  Age: 64 Year
  Sex: 0

DRUGS (6)
  1. MACRODANTIN [Suspect]
     Dosage: 1 DOSE DAILY, ORAL
     Route: 048
  2. NEULASTA [Suspect]
     Dosage: 1 DOSE DAILY
  3. CYCLOPHOSPHAMIDE [Suspect]
     Dosage: 1 DOSE DAILY
  4. VINCRISTINE SULFATE [Suspect]
     Dosage: 1 DOSE DAILY
  5. DOXORUBICIN HYDROCHLORIDE [Suspect]
     Dosage: 1 DOSE DAILY
  6. PREDNISOLONE [Concomitant]

REACTIONS (4)
  - CANDIDIASIS [None]
  - CRYPTOGENIC ORGANIZING PNEUMONIA [None]
  - PLEURAL EFFUSION [None]
  - PNEUMOCYSTIS CARINII PNEUMONIA [None]
